FAERS Safety Report 4792462-5 (Version None)
Quarter: 2005Q4

REPORT INFORMATION
  Report Type: 
  Country: None (occurrence: None)
  Receive Date: 20051010
  Receipt Date: 20050804
  Transmission Date: 20060501
  Serious: Yes (Disabling)
  Sender: FDA-Public Use
  Company Number: GB-GLAXOSMITHKLINE-B0389673A

PATIENT
  Age: 57 Year
  Sex: Male

DRUGS (4)
  1. LAMOTRIGINE [Suspect]
     Dosage: 200MG TWICE PER DAY
     Route: 048
     Dates: start: 20050701, end: 20050901
  2. VENLAFAXINE [Concomitant]
  3. VALPROATE SODIUM [Concomitant]
  4. TOPIRAMATE [Concomitant]

REACTIONS (1)
  - SKIN ODOUR ABNORMAL [None]
